FAERS Safety Report 18526506 (Version 2)
Quarter: 2020Q4

REPORT INFORMATION
  Report Type: Report from Study
  Country: DE (occurrence: DE)
  Receive Date: 20201120
  Receipt Date: 20201123
  Transmission Date: 20210114
  Serious: Yes (Hospitalization, Other)
  Sender: FDA-Public Use
  Company Number: DE-JNJFOC-20201127467

PATIENT
  Sex: Female
  Weight: 56 kg

DRUGS (10)
  1. SIMPONI [Suspect]
     Active Substance: GOLIMUMAB
     Indication: AXIAL SPONDYLOARTHRITIS
     Route: 058
     Dates: start: 20170427, end: 20171229
  2. DICLOFENAC [Concomitant]
     Active Substance: DICLOFENAC
     Indication: AXIAL SPONDYLOARTHRITIS
     Dates: start: 20170601, end: 20180124
  3. METHOTREXATE (METHOTREXATE SODIUM) [Concomitant]
     Active Substance: METHOTREXATE SODIUM
     Indication: AXIAL SPONDYLOARTHRITIS
     Dates: start: 20170210, end: 20170518
  4. METHOTREXATE (METHOTREXATE SODIUM) [Concomitant]
     Active Substance: METHOTREXATE SODIUM
     Dates: start: 20170803, end: 20180119
  5. CALCIUM                            /00060701/ [Concomitant]
     Active Substance: CALCIUM
     Dates: start: 20170210
  6. NOVAMINSULFON [Concomitant]
     Active Substance: METAMIZOLE
     Indication: AXIAL SPONDYLOARTHRITIS
     Dosage: AS NEEDED
     Dates: start: 20180125
  7. CHOLECALCIFEROL [Concomitant]
     Active Substance: CHOLECALCIFEROL
     Dosage: 400 I.U.
     Dates: start: 20170210
  8. METHYLPREDNISOLONE. [Concomitant]
     Active Substance: METHYLPREDNISOLONE
     Dates: start: 20180320
  9. RUBIEFOL [Concomitant]
     Indication: AXIAL SPONDYLOARTHRITIS
     Dates: start: 20170211, end: 20180120
  10. METHOTREXATE (METHOTREXATE SODIUM) [Concomitant]
     Active Substance: METHOTREXATE SODIUM
     Dates: start: 20170526, end: 20170802

REACTIONS (2)
  - Crohn^s disease [Unknown]
  - Scarlet fever [Recovered/Resolved]

NARRATIVE: CASE EVENT DATE: 20170510
